FAERS Safety Report 8393236-9 (Version None)
Quarter: 2012Q2

REPORT INFORMATION
  Report Type: 
  Country: None (occurrence: None)
  Receive Date: 20120529
  Receipt Date: 20120521
  Transmission Date: 20120825
  Serious: Yes (Other)
  Sender: FDA-Public Use
  Company Number: US-ABBOTT-12P-163-0939501-00

PATIENT
  Sex: Male

DRUGS (3)
  1. ROWASA [Suspect]
     Indication: COLITIS ULCERATIVE
     Dosage: 1 APPLICATION, AT NIGHT
     Route: 065
     Dates: start: 20120201
  2. REMICADE [Suspect]
     Indication: COLITIS ULCERATIVE
     Route: 042
     Dates: start: 20070401, end: 20120101
  3. MULTIVITAMINS (VITAMINS, MINERALS) [Concomitant]
     Indication: PRODUCT USED FOR UNKNOWN INDICATION
     Route: 048
     Dates: start: 20120201

REACTIONS (5)
  - DEAFNESS UNILATERAL [None]
  - DIPLOPIA [None]
  - VERTIGO [None]
  - CENTRAL NERVOUS SYSTEM LESION [None]
  - VITAMIN D DECREASED [None]
